FAERS Safety Report 10301729 (Version 6)
Quarter: 2014Q4

REPORT INFORMATION
  Report Type: Report from Study
  Country: CA (occurrence: CA)
  Receive Date: 20140714
  Receipt Date: 20141229
  Transmission Date: 20150528
  Serious: Yes (Hospitalization)
  Sender: FDA-Public Use
  Company Number: CA-TEVA-494013USA

PATIENT
  Age: 76 Year
  Sex: Female
  Weight: 60 kg

DRUGS (66)
  1. ATIVAN [Concomitant]
     Active Substance: LORAZEPAM
     Indication: ANXIETY
     Route: 048
     Dates: start: 20140611
  2. HYDROMORPH CONTIN [Concomitant]
     Active Substance: HYDROMORPHONE
     Indication: SPINAL FRACTURE
     Route: 048
     Dates: start: 20140611, end: 20140720
  3. BENADRYL [Concomitant]
     Active Substance: DIPHENHYDRAMINE HYDROCHLORIDE
     Dosage: 25 MG, SINGLE DOSE
     Route: 042
     Dates: start: 20140619, end: 20140619
  4. LASIX [Concomitant]
     Active Substance: FUROSEMIDE
     Dosage: 20 MG, SINGLE DOSE
     Route: 042
     Dates: start: 20140624, end: 20140624
  5. OBINUTUZUMAB [Suspect]
     Active Substance: OBINUTUZUMAB
     Indication: CHRONIC LYMPHOCYTIC LEUKAEMIA
     Dosage: 100 MG, DAYS 1/2 (SPLIT DOSE), 8 AND 15 OF CYCLE 1, AND ON DAY 1 OF CYCLES 2 TO 6
     Route: 042
     Dates: start: 20140619
  6. ATIVAN [Concomitant]
     Active Substance: LORAZEPAM
     Route: 048
     Dates: start: 20140626
  7. POLYETHYLENE GLYCOL [Concomitant]
     Active Substance: POLYETHYLENE GLYCOLS
     Indication: CONSTIPATION
     Dosage: 17 G, TWICE DAILY UNTIL BM; THEN PRN
     Route: 048
     Dates: start: 20140611, end: 20140620
  8. ASA [Concomitant]
     Active Substance: ASPIRIN
     Indication: PROPHYLAXIS
     Dosage: 81 MG, DAILY IF PLATELETS ABOVE 50
     Route: 048
     Dates: start: 20140611, end: 20140709
  9. RANITIDINE [Concomitant]
     Active Substance: RANITIDINE\RANITIDINE HYDROCHLORIDE
     Indication: PROPHYLAXIS
     Route: 048
     Dates: start: 20140616, end: 20140620
  10. BENADRYL [Concomitant]
     Active Substance: DIPHENHYDRAMINE HYDROCHLORIDE
     Dosage: UNK, UNKNOWN FREQ.
     Route: 042
  11. BENDAMUSTINE HYDROCHLORIDE [Suspect]
     Active Substance: BENDAMUSTINE HYDROCHLORIDE
     Indication: CHRONIC LYMPHOCYTIC LEUKAEMIA
     Dosage: 70 MG/M2, DAY 1 AND 2 OF EACH CYCLE 1 TO 6
     Route: 042
     Dates: start: 20140620
  12. ALLOPURINOL. [Concomitant]
     Active Substance: ALLOPURINOL
     Indication: PROPHYLAXIS
     Route: 048
     Dates: start: 20140617, end: 20140620
  13. SEPTRA DS [Concomitant]
     Active Substance: SULFAMETHOXAZOLE\TRIMETHOPRIM
     Indication: PRODUCT USED FOR UNKNOWN INDICATION
     Dosage: 2 DF, TWICE A DAY ON MON, WED, FRI
     Route: 048
     Dates: start: 20140618
  14. ATIVAN [Concomitant]
     Active Substance: LORAZEPAM
     Dosage: 1 MG, SINGLE DOSE
     Route: 048
     Dates: start: 20140619, end: 20140619
  15. TUMS                               /00193601/ [Concomitant]
     Active Substance: CALCIUM CARBONATE\MAGNESIUM CARBONATE\MAGNESIUM TRISILICATE
     Indication: PRODUCT USED FOR UNKNOWN INDICATION
     Route: 048
     Dates: start: 20140621, end: 20140701
  16. PHOSPHATE                          /01318702/ [Concomitant]
     Indication: PRODUCT USED FOR UNKNOWN INDICATION
     Dosage: UNK UNK, UNKNOWN FREQ.
     Route: 065
  17. OBINUTUZUMAB [Suspect]
     Active Substance: OBINUTUZUMAB
     Route: 042
     Dates: start: 20140731
  18. NORMAL SALINE [Suspect]
     Active Substance: SODIUM CHLORIDE
     Indication: PROPHYLAXIS
     Dosage: 100CC/HR, CONTINUOUS
     Route: 042
     Dates: start: 20140618, end: 20140619
  19. SYNTHROID [Concomitant]
     Active Substance: LEVOTHYROXINE SODIUM
     Route: 048
     Dates: start: 1994
  20. DILAUDID [Concomitant]
     Active Substance: HYDROMORPHONE HYDROCHLORIDE
     Indication: SPINAL FRACTURE
     Dosage: 6 MG, 1 IN 1 AS NEEDED
     Route: 048
     Dates: start: 20140611
  21. RASBURICASE [Concomitant]
     Active Substance: RASBURICASE
     Indication: PROPHYLAXIS
     Dosage: 6 MG, SINGLE DOSE
     Route: 042
     Dates: start: 20140619, end: 20140619
  22. REACTINE                           /00884302/ [Concomitant]
     Active Substance: CETIRIZINE HYDROCHLORIDE
     Indication: PROPHYLAXIS
     Route: 048
     Dates: start: 20140616, end: 20140620
  23. OXYGEN. [Concomitant]
     Active Substance: OXYGEN
     Indication: PRODUCT USED FOR UNKNOWN INDICATION
     Dosage: 8 L/MIN , CONTINUOUS
     Route: 045
     Dates: start: 20140619, end: 20140622
  24. LASIX [Concomitant]
     Active Substance: FUROSEMIDE
     Indication: PRODUCT USED FOR UNKNOWN INDICATION
     Route: 042
     Dates: start: 20140622
  25. LASIX [Concomitant]
     Active Substance: FUROSEMIDE
     Route: 042
     Dates: start: 20140621, end: 20140621
  26. LASIX [Concomitant]
     Active Substance: FUROSEMIDE
     Dosage: 20 MG, 5 SINGLE DOSES
     Route: 042
     Dates: start: 20140622, end: 20140622
  27. LASIX [Concomitant]
     Active Substance: FUROSEMIDE
     Dosage: UNK UNK, UNKNOWN FREQ.
     Route: 065
  28. OBINUTUZUMAB [Suspect]
     Active Substance: OBINUTUZUMAB
     Route: 042
     Dates: start: 20140717
  29. VENTOLIN [Concomitant]
     Active Substance: ALBUTEROL SULFATE
     Indication: BRONCHIAL HYPERREACTIVITY
     Dosage: 5 MG, 1 IN 1 AS NEEDED
     Route: 055
     Dates: start: 20140621, end: 20140624
  30. VENTOLIN [Concomitant]
     Active Substance: ALBUTEROL SULFATE
     Dosage: 2 PUFFS, UNKNOWN FREQ.
     Route: 055
     Dates: start: 20140624
  31. ZOFRAN                             /00955301/ [Concomitant]
     Active Substance: ONDANSETRON HYDROCHLORIDE
     Indication: PROPHYLAXIS
     Dosage: 8 MG, 30 MINUTES PRE-BENDAMUSTINE THEN 4 DOSES EVERY 12 HOURS
     Route: 048
     Dates: start: 20140619
  32. PAMIDRONATE [Concomitant]
     Active Substance: PAMIDRONATE DISODIUM
     Indication: HYPERCALCAEMIA
     Dosage: 90 MG, SINGLE DOSE
     Route: 042
     Dates: start: 20140612, end: 20140612
  33. PIPERACILLIN W/TAZOBACTAM          /01173601/ [Concomitant]
     Dosage: UNK, UNKNOWN FREQ.
     Route: 065
  34. OBINUTUZUMAB [Suspect]
     Active Substance: OBINUTUZUMAB
     Route: 042
     Dates: start: 20140620
  35. OBINUTUZUMAB [Suspect]
     Active Substance: OBINUTUZUMAB
     Route: 042
     Dates: start: 20140828
  36. OBINUTUZUMAB [Suspect]
     Active Substance: OBINUTUZUMAB
     Route: 042
     Dates: start: 20141030
  37. NORMAL SALINE [Suspect]
     Active Substance: SODIUM CHLORIDE
     Dosage: 50CC/HR, CONTINUOUS
     Route: 042
     Dates: start: 20140619, end: 20140620
  38. ACYCLOVIR                          /00587301/ [Concomitant]
     Active Substance: ACYCLOVIR
     Indication: PROPHYLAXIS
     Route: 048
     Dates: start: 20140618
  39. MONTELUKAST [Concomitant]
     Active Substance: MONTELUKAST SODIUM
     Indication: PROPHYLAXIS
     Route: 048
     Dates: start: 20140616, end: 20140620
  40. VENTOLIN [Concomitant]
     Active Substance: ALBUTEROL SULFATE
     Dosage: UNK, UNKNOWN FREQ.
     Route: 055
  41. TYLENOL [Concomitant]
     Active Substance: ACETAMINOPHEN
     Indication: SPINAL FRACTURE
     Dosage: 2 DF, 1 IN 1 AS NEEDED
     Route: 048
     Dates: start: 201406, end: 20140611
  42. TYLENOL [Concomitant]
     Active Substance: ACETAMINOPHEN
     Dosage: 650 MG, SINGLE DOSE AND 30 MINUTES PRIOR GA101
     Route: 048
     Dates: start: 20140619, end: 20140619
  43. ZANTAC [Concomitant]
     Active Substance: RANITIDINE HYDROCHLORIDE
     Indication: PRODUCT USED FOR UNKNOWN INDICATION
     Dosage: 50 MG, SINGLE DOSE
     Route: 042
     Dates: start: 20140619, end: 20140619
  44. PIPERACILLIN W/TAZOBACTAM          /01173601/ [Concomitant]
     Indication: PRODUCT USED FOR UNKNOWN INDICATION
     Dosage: 3.38 MG, 4 TIMES DAILY
     Route: 065
     Dates: start: 20140622, end: 20140630
  45. LASIX [Concomitant]
     Active Substance: FUROSEMIDE
     Dosage: 20 MG, 3 DOSES
     Route: 042
     Dates: start: 20140620, end: 20140620
  46. RED BLOOD CELLS [Concomitant]
     Active Substance: HUMAN RED BLOOD CELL
     Dosage: 1 UNK, SINGLE DOSE
     Route: 042
     Dates: start: 20140620, end: 20140620
  47. OBINUTUZUMAB [Suspect]
     Active Substance: OBINUTUZUMAB
     Route: 042
     Dates: start: 20140710
  48. OBINUTUZUMAB [Suspect]
     Active Substance: OBINUTUZUMAB
     Route: 042
     Dates: start: 20141002
  49. SYNTHROID [Concomitant]
     Active Substance: LEVOTHYROXINE SODIUM
     Indication: HYPOTHYROIDISM
     Route: 048
     Dates: start: 20140611
  50. ATIVAN [Concomitant]
     Active Substance: LORAZEPAM
     Route: 048
     Dates: start: 1994, end: 20140626
  51. SENOKOT-S [Concomitant]
     Active Substance: DOCUSATE SODIUM\SENNOSIDES
     Indication: CONSTIPATION
     Dosage: 2 OTHER PILLS, TWICE DAILY UNTIL BM; THEN PRN
     Route: 048
     Dates: start: 20140611, end: 20140620
  52. MAGNESIUM OXIDE. [Concomitant]
     Active Substance: MAGNESIUM OXIDE
     Dosage: UNK, UNKNOWN FREQ.
     Route: 065
  53. TYLENOL [Concomitant]
     Active Substance: ACETAMINOPHEN
     Dosage: 1000 MG, 1 IN 1 AS NEEDED
     Route: 048
     Dates: start: 20140721
  54. DEXAMETHASONE. [Concomitant]
     Active Substance: DEXAMETHASONE
     Indication: PROPHYLAXIS
     Dosage: 20 MG, 1 HOUR PRE GA101
     Route: 042
     Dates: start: 20140619, end: 20140620
  55. FLOVENT [Concomitant]
     Active Substance: FLUTICASONE PROPIONATE
     Indication: BRONCHIAL HYPERREACTIVITY
     Route: 055
     Dates: start: 20140611, end: 20140619
  56. RED BLOOD CELLS [Concomitant]
     Active Substance: HUMAN RED BLOOD CELL
     Indication: PRODUCT USED FOR UNKNOWN INDICATION
     Dosage: 1 IU, SINGEL DOSE
     Route: 042
     Dates: start: 20140616, end: 20140616
  57. RED BLOOD CELLS [Concomitant]
     Active Substance: HUMAN RED BLOOD CELL
     Dosage: 1 IU,SINGLE DOSE
     Route: 042
     Dates: start: 20140617, end: 20140617
  58. NORMAL SALINE [Suspect]
     Active Substance: SODIUM CHLORIDE
     Route: 042
     Dates: start: 20140712, end: 20140716
  59. LACTULOSE. [Concomitant]
     Active Substance: LACTULOSE
     Indication: CONSTIPATION
     Dosage: 30 OTHER CC, EVERY NIGHT UNTIL BM: THEN PRN
     Route: 048
     Dates: start: 20140611, end: 20140620
  60. VENTOLIN [Concomitant]
     Active Substance: ALBUTEROL SULFATE
     Route: 055
     Dates: start: 20140611, end: 20140619
  61. MAGNESIUM OXIDE. [Concomitant]
     Active Substance: MAGNESIUM OXIDE
     Indication: PRODUCT USED FOR UNKNOWN INDICATION
     Route: 048
     Dates: start: 20140623, end: 20140714
  62. TYLENOL [Concomitant]
     Active Substance: ACETAMINOPHEN
     Indication: PROPHYLAXIS
     Dosage: 650 MG, 30 MINUTES PRIOR GA101
     Route: 048
     Dates: start: 20140619
  63. BENADRYL [Concomitant]
     Active Substance: DIPHENHYDRAMINE HYDROCHLORIDE
     Indication: PROPHYLAXIS
     Dosage: 50 MG, 30 MINUTES PRIOR GA101
     Route: 042
     Dates: start: 20140619
  64. LASIX [Concomitant]
     Active Substance: FUROSEMIDE
     Dosage: 20 MG, SINGLE DOSE
     Route: 048
     Dates: start: 20140620, end: 20140620
  65. LASIX [Concomitant]
     Active Substance: FUROSEMIDE
     Route: 042
     Dates: start: 20140623, end: 20140623
  66. IPRATROPIUM BROMIDE. [Concomitant]
     Active Substance: IPRATROPIUM BROMIDE
     Indication: PRODUCT USED FOR UNKNOWN INDICATION
     Route: 065

REACTIONS (3)
  - Pulmonary oedema [Recovered/Resolved]
  - Tumour lysis syndrome [Recovered/Resolved]
  - Atypical pneumonia [Recovered/Resolved]

NARRATIVE: CASE EVENT DATE: 20140620
